FAERS Safety Report 16444050 (Version 2)
Quarter: 2020Q4

REPORT INFORMATION
  Report Type: Spontaneous
  Country: JP (occurrence: JP)
  Receive Date: 20190618
  Receipt Date: 20201207
  Transmission Date: 20210113
  Serious: Yes (Hospitalization, Other)
  Sender: FDA-Public Use
  Company Number: JP-BRISTOL-MYERS SQUIBB COMPANY-BMS-2019-058631

PATIENT
  Age: 76 Year
  Sex: Male

DRUGS (2)
  1. OPDIVO [Suspect]
     Active Substance: NIVOLUMAB
     Indication: HEAD AND NECK CANCER
     Dosage: 3 MILLIGRAM/KILOGRAM, Q2WK
     Route: 041
  2. GIMERACIL;OTERACIL;TEGAFUR [Concomitant]
     Active Substance: GIMERACIL\OTERACIL\TEGAFUR
     Indication: HEAD AND NECK CANCER
     Dosage: 100 MILLIGRAM
     Route: 065

REACTIONS (3)
  - Immune-mediated enterocolitis [Recovering/Resolving]
  - Malignant neoplasm progression [Unknown]
  - Pseudomembranous colitis [Recovering/Resolving]
